FAERS Safety Report 12370137 (Version 1)
Quarter: 2016Q2

REPORT INFORMATION
  Report Type: Spontaneous
  Country: US (occurrence: None)
  Receive Date: 20160513
  Receipt Date: 20160513
  Transmission Date: 20160815
  Serious: Yes (Other)
  Sender: FDA-Public Use
  Company Number: None

PATIENT
  Age: 25 Year
  Sex: Female
  Weight: 85.73 kg

DRUGS (1)
  1. ABILIFY MAINTENA [Suspect]
     Active Substance: ARIPIPRAZOLE
     Indication: BIPOLAR I DISORDER
     Route: 030
     Dates: start: 20160411, end: 20160512

REACTIONS (9)
  - Alcohol use [None]
  - Weight increased [None]
  - Sexual activity increased [None]
  - Impulsive behaviour [None]
  - Hyperphagia [None]
  - Condition aggravated [None]
  - Tobacco user [None]
  - Therapy change [None]
  - Abnormal behaviour [None]

NARRATIVE: CASE EVENT DATE: 20160512
